FAERS Safety Report 4468092-1 (Version None)
Quarter: 2004Q4

REPORT INFORMATION
  Report Type: 
  Country: None (occurrence: None)
  Receive Date: 20041004
  Receipt Date: 20041004
  Transmission Date: 20050328
  Serious: Yes (Other)
  Sender: FDA-Public Use
  Company Number: None

PATIENT
  Age: 35 Year
  Sex: Male
  Weight: 97.5234 kg

DRUGS (1)
  1. VIOXX [Suspect]
     Indication: SURGERY
     Dosage: ORAL
     Route: 048
     Dates: start: 19990530, end: 20010701

REACTIONS (1)
  - GASTROINTESTINAL DISORDER [None]
